FAERS Safety Report 7359164-2 (Version None)
Quarter: 2011Q1

REPORT INFORMATION
  Report Type: 
  Country: None (occurrence: None)
  Receive Date: 20110225
  Receipt Date: 20101123
  Transmission Date: 20110831
  Serious: No
  Sender: FDA-Public Use
  Company Number: 318932

PATIENT
  Sex: Female

DRUGS (4)
  1. SINGULAIR [Concomitant]
  2. XYZAL [Concomitant]
  3. ERGOCALCIFEROL [Concomitant]
  4. VICTOZA [Suspect]
     Indication: TYPE 2 DIABETES MELLITUS
     Dosage: SUBCUTANEOUS
     Route: 058

REACTIONS (6)
  - DYSPHAGIA [None]
  - INCREASED APPETITE [None]
  - OROPHARYNGEAL PAIN [None]
  - DYSPNOEA [None]
  - WEIGHT INCREASED [None]
  - DRUG INEFFECTIVE [None]
